FAERS Safety Report 18156023 (Version 2)
Quarter: 2020Q3

REPORT INFORMATION
  Report Type: Spontaneous
  Country: US (occurrence: US)
  Receive Date: 20200817
  Receipt Date: 20200818
  Transmission Date: 20201103
  Serious: Yes (Other)
  Sender: FDA-Public Use
  Company Number: US-PFIZER INC-2020314843

PATIENT
  Age: 24 Year
  Sex: Male

DRUGS (1)
  1. EPINEPHRINE. [Suspect]
     Active Substance: EPINEPHRINE
     Indication: ASTHMA
     Dosage: UNK (LARGE DOSE) 1 CC. OF 1: 200
     Route: 058

REACTIONS (6)
  - Headache [Unknown]
  - Accidental overdose [Unknown]
  - Hypotension [Unknown]
  - Chest discomfort [Unknown]
  - Hypertension [Unknown]
  - Myocardial ischaemia [Unknown]
